FAERS Safety Report 8763770 (Version 22)
Quarter: 2016Q3

REPORT INFORMATION
  Report Type: Report from Study
  Country: CA (occurrence: CA)
  Receive Date: 20120831
  Receipt Date: 20160908
  Transmission Date: 20161109
  Serious: Yes (Hospitalization, Other)
  Sender: FDA-Public Use
  Company Number: PHHY2012CA026085

PATIENT
  Age: 78 Year
  Sex: Female

DRUGS (6)
  1. SANDOSTATIN LAR DEPOT [Suspect]
     Active Substance: OCTREOTIDE ACETATE
     Dosage: 30 MG, QMO (EVERY 4 WEEKS)
     Route: 030
     Dates: start: 20150402, end: 20160303
  2. SANDOSTATIN LAR DEPOT [Suspect]
     Active Substance: OCTREOTIDE ACETATE
     Dosage: 80 MG (ADDITIONAL 20 MG OF THE 60 MG DOSE)
     Route: 030
     Dates: start: 20160627
  3. SANDOSTATIN LAR DEPOT [Suspect]
     Active Substance: OCTREOTIDE ACETATE
     Indication: CARCINOID SYNDROME
     Dosage: 20 MG, QMO (EVERY 4 WEEKS)
     Route: 030
     Dates: start: 20101006, end: 20150305
  4. SANDOSTATIN LAR DEPOT [Suspect]
     Active Substance: OCTREOTIDE ACETATE
     Dosage: 40 MG, QMO
     Route: 030
     Dates: start: 20160331, end: 20160525
  5. SANDOSTATIN LAR DEPOT [Suspect]
     Active Substance: OCTREOTIDE ACETATE
     Dosage: 60 MG, QMO (EVERY 4 WEEKS)
     Route: 030
     Dates: start: 20160624
  6. SANDOSTATIN LAR DEPOT [Suspect]
     Active Substance: OCTREOTIDE ACETATE
     Dosage: 30 MG, UNK
     Route: 030

REACTIONS (32)
  - Sepsis [Unknown]
  - Urinary tract infection [Unknown]
  - Injection site haematoma [Unknown]
  - Injection site bruising [Recovered/Resolved]
  - Fall [Unknown]
  - Syncope [Recovered/Resolved]
  - Blood pressure systolic increased [Unknown]
  - Peripheral swelling [Unknown]
  - Injection site mass [Unknown]
  - Pneumonia [Unknown]
  - Inner ear disorder [Unknown]
  - Pain in extremity [Not Recovered/Not Resolved]
  - Syncope [Unknown]
  - Erythema [Unknown]
  - Hypoglycaemia [Unknown]
  - Constipation [Recovering/Resolving]
  - Joint swelling [Unknown]
  - Drug dispensing error [Unknown]
  - Body temperature decreased [Unknown]
  - Arthralgia [Not Recovered/Not Resolved]
  - Arthritis [Unknown]
  - Injection site bruising [Unknown]
  - Blood disorder [Unknown]
  - Fluid retention [Unknown]
  - Chest pain [Recovered/Resolved]
  - Injection site haemorrhage [Unknown]
  - Dizziness [Not Recovered/Not Resolved]
  - Injection site pain [Unknown]
  - Asthenia [Unknown]
  - Ankle fracture [Unknown]
  - Dyspnoea [Unknown]
  - Extra dose administered [Unknown]

NARRATIVE: CASE EVENT DATE: 20120801
